FAERS Safety Report 8572270-X (Version None)
Quarter: 2012Q2

REPORT INFORMATION
  Report Type: 
  Country: None (occurrence: None)
  Receive Date: 20120418
  Receipt Date: 20090811
  Transmission Date: 20120825
  Serious: Yes (Congenital Anomaly, Other)
  Sender: FDA-Public Use
  Company Number: PHEH2009US09316

PATIENT

DRUGS (1)
  1. DIOVAN HCT [Suspect]
     Dosage: MATERNAL DOSE: 320/25 MG, TRANSPLACENTAL
     Route: 064

REACTIONS (2)
  - FOETAL MALFORMATION [None]
  - MATERNAL EXPOSURE DURING PREGNANCY [None]
